FAERS Safety Report 5193488-2 (Version None)
Quarter: 2006Q4

REPORT INFORMATION
  Report Type: 
  Country: None (occurrence: None)
  Receive Date: 20061228
  Receipt Date: 20060517
  Transmission Date: 20070319
  Serious: No
  Sender: FDA-Public Use
  Company Number: 2439

PATIENT
  Age: 34 Year
  Sex: Female
  Weight: 50 kg

DRUGS (2)
  1. FLUTICASONE PROPIONATE [Suspect]
     Dosage: 2SPR PER DAY
     Route: 045
     Dates: start: 20060419, end: 20060510
  2. ALLEGRA [Concomitant]

REACTIONS (1)
  - URTICARIA [None]
